FAERS Safety Report 8286799-5 (Version None)
Quarter: 2012Q2

REPORT INFORMATION
  Report Type: 
  Country: None (occurrence: None)
  Receive Date: 20120416
  Receipt Date: 20120406
  Transmission Date: 20120825
  Serious: Yes (Other)
  Sender: FDA-Public Use
  Company Number: JP-BRISTOL-MYERS SQUIBB COMPANY-16487530

PATIENT
  Age: 68 Year
  Sex: Female
  Weight: 47 kg

DRUGS (3)
  1. AMOBAN [Concomitant]
     Dosage: TABS
     Dates: start: 20120203
  2. ABILIFY [Suspect]
     Indication: BIPOLAR DISORDER
     Dosage: 24MG
     Route: 048
     Dates: start: 20120203
  3. LITHIUM CARBONATE [Interacting]
     Indication: BIPOLAR DISORDER
     Dosage: TABS
     Route: 048
     Dates: start: 20111216

REACTIONS (2)
  - PHOTOPHOBIA [None]
  - DRUG INTERACTION [None]
